FAERS Safety Report 16172974 (Version 1)
Quarter: 2019Q2

REPORT INFORMATION
  Report Type: Spontaneous
  Country: US (occurrence: US)
  Receive Date: 20190409
  Receipt Date: 20190409
  Transmission Date: 20190711
  Serious: No
  Sender: FDA-Public Use
  Company Number: US-PFIZER INC-2019142828

PATIENT
  Age: 68 Year
  Sex: Female
  Weight: 70.3 kg

DRUGS (4)
  1. ROPINIROLE. [Concomitant]
     Active Substance: ROPINIROLE
     Indication: RESTLESS LEGS SYNDROME
     Dosage: 2 MG, 2X/DAY (ONE TABLET IN MORNING ONE TABLET IN AFTERNOON)
  2. LYRICA [Suspect]
     Active Substance: PREGABALIN
     Dosage: 100 MG, 1X/DAY (50MG TWO CAPSULES ONCE AT NIGHT )
  3. LYRICA [Suspect]
     Active Substance: PREGABALIN
     Indication: MUSCLE SPASMS
     Dosage: 50 MG, 1X/DAY (AT NIGHT)
     Dates: start: 201903
  4. LYRICA [Suspect]
     Active Substance: PREGABALIN
     Dosage: 150 MG, 1X/DAY (50MG THREE CAPSULES ONCE AT NIGHT )
     Dates: end: 20190326

REACTIONS (4)
  - Product use in unapproved indication [Unknown]
  - Drug hypersensitivity [Recovering/Resolving]
  - Condition aggravated [Unknown]
  - Muscle spasms [Unknown]

NARRATIVE: CASE EVENT DATE: 201903
